FAERS Safety Report 24892947 (Version 2)
Quarter: 2025Q2

REPORT INFORMATION
  Report Type: Spontaneous
  Country: JP (occurrence: JP)
  Receive Date: 20250128
  Receipt Date: 20250507
  Transmission Date: 20250717
  Serious: Yes (Death, Hospitalization, Other)
  Sender: BRISTOL-MYERS SQUIBB COMPANY
  Company Number: JP-BRISTOL-MYERS SQUIBB COMPANY-2025-012061

PATIENT
  Age: 8 Decade
  Sex: Male

DRUGS (2)
  1. YERVOY [Suspect]
     Active Substance: IPILIMUMAB
     Indication: Lung adenocarcinoma
     Route: 041
  2. OPDIVO [Suspect]
     Active Substance: NIVOLUMAB
     Indication: Lung adenocarcinoma
     Route: 041

REACTIONS (16)
  - Platelet count decreased [Unknown]
  - Immune-mediated dermatitis [Unknown]
  - Renal impairment [Unknown]
  - Immune-mediated enterocolitis [Unknown]
  - Enteritis infectious [Unknown]
  - Pyrexia [Unknown]
  - Diarrhoea [Unknown]
  - Campylobacter infection [Unknown]
  - Abdominal pain [Unknown]
  - Blood pressure decreased [Unknown]
  - Restlessness [Unknown]
  - Respiratory arrest [Fatal]
  - Pulseless electrical activity [Fatal]
  - Sepsis [Fatal]
  - Cytokine storm [Fatal]
  - Cytokine release syndrome [Fatal]
